FAERS Safety Report 9682929 (Version 1)
Quarter: 2013Q4

REPORT INFORMATION
  Report Type: Spontaneous
  Country: US (occurrence: None)
  Receive Date: 20131111
  Receipt Date: 20131111
  Transmission Date: 20140711
  Serious: Yes (Other)
  Sender: FDA-Public Use
  Company Number: None

PATIENT
  Age: 81 Year
  Sex: Male
  Weight: 66 kg

DRUGS (14)
  1. ENZALUTAMIDE [Suspect]
     Indication: PROSTATE CANCER METASTATIC
     Dosage: 4 CAPS QD ORAL
     Route: 048
     Dates: start: 20130924, end: 20131003
  2. ROFLUMILAST (DALIRESP) 500MG [Concomitant]
  3. ECTOTRIN 81MG [Concomitant]
  4. METOPROLOL 25MG [Concomitant]
  5. AMLODIPINE 10MG [Concomitant]
  6. TRIAMTERENE/HCTZ (DYAZIDE) 37.5/25MG [Concomitant]
  7. MEMANTINE (NEMENDA) 10MG [Concomitant]
  8. DONEPEZIL 10MG [Concomitant]
  9. REPAGLINIDE (PRANDIN) 2MG [Concomitant]
  10. CARBIDOPA/LEVODOPA 25-100MG SUN PHARMACEUTICAL [Concomitant]
  11. BIMATOPROST (LUMIGAN) 0.01% [Concomitant]
  12. DORZOLAMIDE/TIMOLOL (COSOPT) 2%-0.5% [Concomitant]
  13. FAMOTIDINE 20MG [Concomitant]
  14. CETIRIZINE 10 MG [Concomitant]

REACTIONS (2)
  - Hallucination [None]
  - Hypoglycaemia [None]
